FAERS Safety Report 4705909-7 (Version None)
Quarter: 2005Q2

REPORT INFORMATION
  Report Type: 
  Country: None (occurrence: None)
  Receive Date: 20050629
  Receipt Date: 20050622
  Transmission Date: 20051028
  Serious: Yes (Death)
  Sender: FDA-Public Use
  Company Number: 2005067714

PATIENT
  Age: 55 Year
  Sex: Female

DRUGS (4)
  1. AROMASIN [Suspect]
     Indication: BREAST CANCER STAGE IV
     Dosage: 25 MG (25 MG, DAILY INTERVAL: EVERYDAY), ORAL
     Route: 048
     Dates: start: 20040401, end: 20040701
  2. DOCETAXEL (DOCETAXEL) [Concomitant]
  3. TAMOXIFEN CITRATE [Concomitant]
  4. ARIMIDEX ^ICI^ (ANASTRAZOLE) [Concomitant]

REACTIONS (2)
  - MALIGNANT NEOPLASM PROGRESSION [None]
  - METASTASES TO LUNG [None]
